FAERS Safety Report 15803476 (Version 1)
Quarter: 2019Q1

REPORT INFORMATION
  Report Type: Spontaneous
  Country: ES (occurrence: ES)
  Receive Date: 20190109
  Receipt Date: 20190109
  Transmission Date: 20190417
  Serious: Yes (Other)
  Sender: FDA-Public Use
  Company Number: ES-BAYER-2019-006736

PATIENT
  Age: 85 Year
  Sex: Male

DRUGS (2)
  1. XOFIGO [Suspect]
     Active Substance: RADIUM RA-223 DICHLORIDE
     Indication: HORMONE-REFRACTORY PROSTATE CANCER
     Dosage: UNK
     Dates: start: 20160121
  2. XOFIGO [Suspect]
     Active Substance: RADIUM RA-223 DICHLORIDE
     Indication: METASTASES TO BONE

REACTIONS (8)
  - Pre-existing condition improved [None]
  - Condition aggravated [None]
  - Metastases to bone [None]
  - Metastases to pelvis [None]
  - Metastases to bone [None]
  - Metastases to spine [None]
  - Pain [Recovering/Resolving]
  - Anaemia [None]

NARRATIVE: CASE EVENT DATE: 2016
